FAERS Safety Report 7565541-7 (Version None)
Quarter: 2011Q2

REPORT INFORMATION
  Report Type: 
  Country: None (occurrence: None)
  Receive Date: 20110623
  Receipt Date: 20110617
  Transmission Date: 20111010
  Serious: Yes (Other)
  Sender: FDA-Public Use
  Company Number: US-BRISTOL-MYERS SQUIBB COMPANY-15778541

PATIENT
  Age: 65 Year
  Sex: Female

DRUGS (4)
  1. KENALOG-40 [Suspect]
     Indication: HYPERSENSITIVITY
     Dosage: ALSO TAKEN IN 18MAY2011 NO OF DOSES TAKE:5 TO 6 SHOTS
     Dates: start: 20090101
  2. ATIVAN [Concomitant]
  3. KENALOG-40 [Suspect]
     Indication: SINUS DISORDER
     Dosage: ALSO TAKEN IN 18MAY2011 NO OF DOSES TAKE:5 TO 6 SHOTS
     Dates: start: 20090101
  4. SYNTHROID [Concomitant]

REACTIONS (8)
  - DIZZINESS [None]
  - SPINAL DISORDER [None]
  - INTESTINAL FUNCTIONAL DISORDER [None]
  - ANXIETY [None]
  - VISION BLURRED [None]
  - ABDOMINAL PAIN UPPER [None]
  - ARRHYTHMIA [None]
  - CRYING [None]
